FAERS Safety Report 9202401 (Version 1)
Quarter: 2013Q1

REPORT INFORMATION
  Report Type: Spontaneous
  Country: US (occurrence: None)
  Receive Date: 20130329
  Receipt Date: 20130329
  Transmission Date: 20140127
  Serious: Yes (Hospitalization)
  Sender: FDA-Public Use
  Company Number: None

PATIENT
  Age: 53 Year
  Sex: Male
  Weight: 86.18 kg

DRUGS (1)
  1. CLARITHROMYCIN [Suspect]
     Dosage: ONE TABLET EVERY 12 HOURS MOUTH
     Route: 048
     Dates: start: 20130209, end: 20130210

REACTIONS (1)
  - Heart rate increased [None]
